FAERS Safety Report 16307957 (Version 1)
Quarter: 2019Q2

REPORT INFORMATION
  Report Type: Spontaneous
  Country: US (occurrence: US)
  Receive Date: 20190514
  Receipt Date: 20190514
  Transmission Date: 20190711
  Serious: No
  Sender: FDA-Public Use
  Company Number: US-BIOGEN-2019BI00731819

PATIENT
  Sex: Male
  Weight: 99.88 kg

DRUGS (2)
  1. TECFIDERA [Suspect]
     Active Substance: DIMETHYL FUMARATE
     Indication: MULTIPLE SCLEROSIS
     Route: 048
     Dates: start: 20190424, end: 20190427
  2. COPAXONE [Concomitant]
     Active Substance: GLATIRAMER ACETATE
     Route: 065

REACTIONS (4)
  - Malaise [Not Recovered/Not Resolved]
  - Frustration tolerance decreased [Unknown]
  - Cognitive disorder [Unknown]
  - Hypersensitivity [Unknown]
